FAERS Safety Report 12075626 (Version 1)
Quarter: 2016Q1

REPORT INFORMATION
  Report Type: Spontaneous
  Country: US (occurrence: US)
  Receive Date: 20160213
  Receipt Date: 20160213
  Transmission Date: 20160526
  Serious: Yes (Death, Hospitalization, Other)
  Sender: FDA-Public Use
  Company Number: US-SHIRE-US201601701

PATIENT
  Age: 15 Year
  Sex: Male
  Weight: 82 kg

DRUGS (1)
  1. VYVANSE [Suspect]
     Active Substance: LISDEXAMFETAMINE DIMESYLATE
     Indication: PRODUCT USED FOR UNKNOWN INDICATION
     Dosage: UNK, UNKNOWN
     Route: 065

REACTIONS (7)
  - Completed suicide [Fatal]
  - Respiratory arrest [Fatal]
  - Intentional overdose [Fatal]
  - Tachycardia [Unknown]
  - Cardiac arrest [Fatal]
  - Hypertension [Unknown]
  - Brain injury [Unknown]

NARRATIVE: CASE EVENT DATE: 20150721
